FAERS Safety Report 4678223-6 (Version None)
Quarter: 2005Q2

REPORT INFORMATION
  Report Type: 
  Country: None (occurrence: None)
  Receive Date: 20050601
  Receipt Date: 20050520
  Transmission Date: 20051028
  Serious: Yes (Death, Hospitalization)
  Sender: FDA-Public Use
  Company Number: US-BRISTOL-MYERS SQUIBB COMPANY-12977385

PATIENT
  Age: 60 Year

DRUGS (2)
  1. COUMADIN [Suspect]
     Indication: AORTIC VALVE REPLACEMENT
     Dosage: BEGAN TAKING 3 TO 4 MG DAILY, DECREASED TO 2 MG DAILY ON 14-NOV-2000
     Dates: start: 20001101
  2. DARVOCET-N 100 [Concomitant]
     Dosage: 100 AS NEEDED 3-4 TIMES PER DAY

REACTIONS (7)
  - ANAEMIA [None]
  - CARDIAC ARREST [None]
  - COMA [None]
  - DEATH [None]
  - GASTROINTESTINAL HAEMORRHAGE [None]
  - PERICARDIAL EFFUSION [None]
  - SHOCK [None]
